FAERS Safety Report 13396824 (Version 1)
Quarter: 2017Q2

REPORT INFORMATION
  Report Type: Spontaneous
  Country: US (occurrence: US)
  Receive Date: 20170403
  Receipt Date: 20170403
  Transmission Date: 20170830
  Serious: No
  Sender: FDA-Public Use
  Company Number: US-ASTRAZENECA-2017SE31213

PATIENT

DRUGS (6)
  1. PULMICORT FLEXHALER [Suspect]
     Active Substance: BUDESONIDE
     Indication: CHRONIC OBSTRUCTIVE PULMONARY DISEASE
     Dosage: 2 PUFFS, TWICE A DAY
     Route: 055
     Dates: start: 201702
  2. ENCRUSE [Concomitant]
     Route: 055
  3. VENTOLIN [Concomitant]
     Active Substance: ALBUTEROL SULFATE
     Indication: DIABETES MELLITUS
     Route: 055
  4. ALBUTEROL. [Concomitant]
     Active Substance: ALBUTEROL
     Route: 055
  5. PULMICORT FLEXHALER [Suspect]
     Active Substance: BUDESONIDE
     Indication: EMPHYSEMA
     Dosage: 2 PUFFS, TWICE A DAY
     Route: 055
     Dates: start: 201702
  6. PULMICORT FLEXHALER [Suspect]
     Active Substance: BUDESONIDE
     Indication: ASTHMA
     Dosage: 2 PUFFS, TWICE A DAY
     Route: 055
     Dates: start: 201702

REACTIONS (6)
  - Dyspnoea [Not Recovered/Not Resolved]
  - Product use in unapproved indication [Unknown]
  - Device failure [Unknown]
  - Circumstance or information capable of leading to medication error [Not Recovered/Not Resolved]
  - Wrong technique in product usage process [Not Recovered/Not Resolved]
  - Off label use [Not Recovered/Not Resolved]

NARRATIVE: CASE EVENT DATE: 201702
